FAERS Safety Report 6711773-7 (Version None)
Quarter: 2010Q2

REPORT INFORMATION
  Report Type: 
  Country: None (occurrence: None)
  Receive Date: 20100505
  Receipt Date: 20100421
  Transmission Date: 20101027
  Serious: Yes (Other)
  Sender: FDA-Public Use
  Company Number: B0647792A

PATIENT
  Age: 4 Year
  Sex: Male

DRUGS (4)
  1. VENTOLIN [Suspect]
     Route: 055
  2. ISOPROTERENOL HYDROCHLORIDE [Suspect]
     Route: 055
  3. AMINOPHYLLINE [Suspect]
     Route: 042
  4. UNKNOWN DRUG [Concomitant]

REACTIONS (4)
  - ARRHYTHMIA [None]
  - BRAIN NATRIURETIC PEPTIDE INCREASED [None]
  - SUPRAVENTRICULAR EXTRASYSTOLES [None]
  - VENTRICULAR EXTRASYSTOLES [None]
